FAERS Safety Report 8270957-X (Version None)
Quarter: 2012Q2

REPORT INFORMATION
  Report Type: 
  Country: None (occurrence: None)
  Receive Date: 20120410
  Receipt Date: 20120403
  Transmission Date: 20120825
  Serious: No
  Sender: FDA-Public Use
  Company Number: US-PFIZER INC-2012071837

PATIENT
  Sex: Female
  Weight: 49.9 kg

DRUGS (4)
  1. ASPIRIN [Concomitant]
     Dosage: 81 MG, DAILY
  2. COSAMIN DS [Concomitant]
     Dosage: 1 DF, DAILY
  3. EXEMESTANE [Suspect]
     Indication: BREAST CANCER
     Dosage: 25 MG, 1X/DAY
     Route: 048
     Dates: start: 20111208, end: 20120201
  4. CALCIUM [Concomitant]

REACTIONS (5)
  - DRUG INTOLERANCE [None]
  - PERSONALITY CHANGE [None]
  - FATIGUE [None]
  - PRURITUS [None]
  - INSOMNIA [None]
